FAERS Safety Report 19847626 (Version 1)
Quarter: 2021Q3

REPORT INFORMATION
  Report Type: Spontaneous
  Country: BR (occurrence: BR)
  Receive Date: 20210917
  Receipt Date: 20210917
  Transmission Date: 20211014
  Serious: Yes (Hospitalization)
  Sender: FDA-Public Use
  Company Number: BR-VERTEX PHARMACEUTICALS-2021-014108

PATIENT
  Age: 41 Year
  Sex: Male

DRUGS (1)
  1. KALYDECO [Suspect]
     Active Substance: IVACAFTOR
     Indication: CYSTIC FIBROSIS
     Dosage: 150 MG
     Route: 048
     Dates: start: 2018

REACTIONS (1)
  - Infective pulmonary exacerbation of cystic fibrosis [Recovered/Resolved]

NARRATIVE: CASE EVENT DATE: 202102
